FAERS Safety Report 10066282 (Version 1)
Quarter: 2014Q2

REPORT INFORMATION
  Report Type: Spontaneous
  Country: US (occurrence: US)
  Receive Date: 20140408
  Receipt Date: 20140408
  Transmission Date: 20141212
  Serious: Yes (Other)
  Sender: FDA-Public Use
  Company Number: US-ABBVIE-14P-163-1221938-00

PATIENT
  Sex: Male

DRUGS (2)
  1. ANDROGEL [Suspect]
     Indication: BLOOD TESTOSTERONE DECREASED
  2. TESTIM [Concomitant]
     Indication: BLOOD TESTOSTERONE DECREASED

REACTIONS (7)
  - Myocardial infarction [Unknown]
  - Physical disability [Unknown]
  - Emotional disorder [Unknown]
  - Economic problem [Unknown]
  - Pain [Unknown]
  - Tension [Unknown]
  - Impaired work ability [Unknown]
